FAERS Safety Report 19669052 (Version 1)
Quarter: 2021Q3

REPORT INFORMATION
  Report Type: Spontaneous
  Country: US (occurrence: US)
  Receive Date: 20210806
  Receipt Date: 20210806
  Transmission Date: 20211014
  Serious: Yes (Other)
  Sender: FDA-Public Use
  Company Number: US-LUPIN PHARMACEUTICALS INC.-2021-14158

PATIENT
  Age: 51 Year
  Sex: Female

DRUGS (4)
  1. TRIAMCINOLONE [Suspect]
     Active Substance: TRIAMCINOLONE
     Indication: PYODERMA GANGRENOSUM
     Dosage: 10 MG/CC
     Route: 026
  2. CYCLOSPORINE. [Suspect]
     Active Substance: CYCLOSPORINE
     Indication: PYODERMA GANGRENOSUM
     Dosage: 100 MILLIGRAM, BID
     Route: 065
  3. PREDNISONE. [Suspect]
     Active Substance: PREDNISONE
     Indication: PYODERMA GANGRENOSUM
     Dosage: 60 MILLIGRAM, QD
     Route: 048
  4. METHYLPREDNISOLONE. [Concomitant]
     Active Substance: METHYLPREDNISOLONE
     Indication: PYODERMA GANGRENOSUM
     Dosage: UNK (PULSE STEROID THERAPY)
     Route: 065

REACTIONS (1)
  - Drug ineffective [Unknown]
